FAERS Safety Report 18702994 (Version 2)
Quarter: 2021Q1

REPORT INFORMATION
  Report Type: Report from Study
  Country: CA (occurrence: CA)
  Receive Date: 20210105
  Receipt Date: 20210115
  Transmission Date: 20210419
  Serious: Yes (Other)
  Sender: FDA-Public Use
  Company Number: CA-PFIZER INC-2020518164

PATIENT
  Age: 47 Year
  Sex: Male

DRUGS (13)
  1. CANDESARTAN. [Suspect]
     Active Substance: CANDESARTAN
     Dosage: 8 MG
     Route: 048
  2. AMLODIPINE BESILATE [Concomitant]
     Active Substance: AMLODIPINE BESYLATE
     Dosage: 5 MG, 1X/DAY
     Route: 048
  3. TYLENOL [Concomitant]
     Active Substance: ACETAMINOPHEN
     Dosage: UNK, WEEKLY
     Route: 065
  4. IBUPROFEN. [Concomitant]
     Active Substance: IBUPROFEN
     Dosage: 400 MG
     Route: 048
  5. SERTRALINE HCL [Suspect]
     Active Substance: SERTRALINE HYDROCHLORIDE
     Indication: MIGRAINE
     Route: 065
  6. METOCLOPRAMIDE HCL [Suspect]
     Active Substance: METOCLOPRAMIDE HYDROCHLORIDE
     Indication: MIGRAINE
     Dosage: 5 MG
     Route: 048
  7. AIMOVIG [Suspect]
     Active Substance: ERENUMAB-AOOE
     Dosage: 140 MG, MONTHLY
     Route: 058
  8. ZOPICLONE [Suspect]
     Active Substance: ZOPICLONE
     Indication: MIGRAINE
     Route: 065
  9. ADVIL [Concomitant]
     Active Substance: IBUPROFEN
     Route: 065
  10. DULOXETINE. [Suspect]
     Active Substance: DULOXETINE
     Indication: MIGRAINE
     Dosage: 60 MG
     Route: 048
  11. CYMBALTA [Concomitant]
     Active Substance: DULOXETINE HYDROCHLORIDE
     Dosage: 90 MG, 1X/DAY
     Route: 065
  12. AMLODIPINE BESILATE [Suspect]
     Active Substance: AMLODIPINE BESYLATE
     Indication: MIGRAINE
     Route: 065
  13. AIMOVIG [Suspect]
     Active Substance: ERENUMAB-AOOE
     Indication: MIGRAINE
     Route: 065

REACTIONS (8)
  - Aphasia [Not Recovered/Not Resolved]
  - Snoring [Not Recovered/Not Resolved]
  - Inappropriate schedule of product administration [Not Recovered/Not Resolved]
  - Post concussion syndrome [Not Recovered/Not Resolved]
  - Drug ineffective [Not Recovered/Not Resolved]
  - Headache [Not Recovered/Not Resolved]
  - Malaise [Not Recovered/Not Resolved]
  - Sleep disorder [Not Recovered/Not Resolved]
